FAERS Safety Report 8337669-5 (Version None)
Quarter: 2012Q2

REPORT INFORMATION
  Report Type: 
  Country: None (occurrence: None)
  Receive Date: 20120504
  Receipt Date: 20120504
  Transmission Date: 20120825
  Serious: No
  Sender: FDA-Public Use
  Company Number: None

PATIENT
  Age: 55 Year
  Sex: Male
  Weight: 96.161 kg

DRUGS (1)
  1. METFORMIN HCL [Suspect]
     Indication: DIABETES MELLITUS
     Dosage: |DOSAGETEXT: 1000 MG||STRENGTH: 1000MG||FREQ: TWICE A DAY||ROUTE: ORAL|
     Route: 048
     Dates: start: 19980701, end: 20100701

REACTIONS (4)
  - VITAMIN B12 DEFICIENCY [None]
  - MALABSORPTION [None]
  - NEUROPATHY PERIPHERAL [None]
  - PERNICIOUS ANAEMIA [None]
